FAERS Safety Report 13688762 (Version 1)
Quarter: 2017Q2

REPORT INFORMATION
  Report Type: Spontaneous
  Country: US (occurrence: US)
  Receive Date: 20170623
  Receipt Date: 20170623
  Transmission Date: 20170830
  Serious: Yes (Disabling)
  Sender: FDA-Public Use
  Company Number: None

PATIENT
  Age: 61 Year
  Sex: Female
  Weight: 91.35 kg

DRUGS (9)
  1. VITAMIN D [Concomitant]
     Active Substance: CHOLECALCIFEROL
  2. OMEGA 3 FISH OIL [Concomitant]
     Active Substance: FISH OIL\OMEGA-3 FATTY ACIDS
  3. CALCIUM [Concomitant]
     Active Substance: CALCIUM
  4. MAGNESIUM [Concomitant]
     Active Substance: MAGNESIUM
  5. MIRTAZAPINE. [Concomitant]
     Active Substance: MIRTAZAPINE
  6. VITAMIN K [Concomitant]
     Active Substance: PHYTONADIONE
  7. COD LIVER OIL [Concomitant]
     Active Substance: COD LIVER OIL
  8. CLONAZEPAM. [Suspect]
     Active Substance: CLONAZEPAM
     Indication: ANXIETY
     Route: 048
     Dates: start: 20000910, end: 20160315
  9. VITAMIN E [Concomitant]
     Active Substance: .ALPHA.-TOCOPHEROL

REACTIONS (17)
  - Panic attack [None]
  - Irritability [None]
  - Oesophageal spasm [None]
  - Insomnia [None]
  - Myalgia [None]
  - Restlessness [None]
  - Suicidal ideation [None]
  - Withdrawal syndrome [None]
  - Tinnitus [None]
  - Nausea [None]
  - Muscle tightness [None]
  - Nervousness [None]
  - Depressed mood [None]
  - Fear [None]
  - Feeling of body temperature change [None]
  - Vision blurred [None]
  - Gastrointestinal disorder [None]

NARRATIVE: CASE EVENT DATE: 20140610
